FAERS Safety Report 8226921-X (Version None)
Quarter: 2012Q1

REPORT INFORMATION
  Report Type: 
  Country: None (occurrence: None)
  Receive Date: 20120322
  Receipt Date: 20110613
  Transmission Date: 20120608
  Serious: No
  Sender: FDA-Public Use
  Company Number: US-MYLANLABS-2011S1012381

PATIENT
  Sex: Female

DRUGS (3)
  1. AZILSARTAN MEDOXOMIL [Suspect]
     Indication: HYPERTENSION
     Route: 048
     Dates: start: 20110401
  2. CHLORTHALIDONE [Suspect]
     Indication: HYPERTENSION
     Route: 048
     Dates: end: 20110101
  3. CHLORTHALIDONE [Suspect]
     Route: 048
     Dates: start: 20110101

REACTIONS (3)
  - FATIGUE [None]
  - BLOOD PRESSURE SYSTOLIC DECREASED [None]
  - HYPOTENSION [None]
